FAERS Safety Report 10952991 (Version 1)
Quarter: 2015Q1

REPORT INFORMATION
  Report Type: Spontaneous
  Country: US (occurrence: None)
  Receive Date: 20150324
  Receipt Date: 20150324
  Transmission Date: 20150721
  Serious: No
  Sender: FDA-Public Use
  Company Number: None

PATIENT
  Age: 82 Year
  Sex: Female
  Weight: 56.7 kg

DRUGS (14)
  1. SPIRONLACTONE [Concomitant]
  2. OMEPRAZOLE. [Concomitant]
     Active Substance: OMEPRAZOLE
  3. COQ10 [Concomitant]
     Active Substance: UBIDECARENONE
  4. ATORVASTATIN [Concomitant]
     Active Substance: ATORVASTATIN
  5. MULTI-VITAMIN (CENTRUM SILVER) [Concomitant]
  6. ASPIRIN. [Concomitant]
     Active Substance: ASPIRIN
  7. METOPROLOL [Concomitant]
     Active Substance: METOPROLOL
  8. ATORVASTATIN [Concomitant]
     Active Substance: ATORVASTATIN
  9. GENUINE BAYER ASPIRIN - 325 MG [Suspect]
     Active Substance: ASPIRIN
     Indication: CARDIAC DISORDER
     Dosage: 125 (EA. PERSON) 1 DAILY MOUTH
     Route: 048
     Dates: start: 20150201, end: 20150305
  10. LISINOPRIL. [Concomitant]
     Active Substance: LISINOPRIL
  11. RANITIDINE [Concomitant]
     Active Substance: RANITIDINE\RANITIDINE HYDROCHLORIDE
  12. CODEINE [Concomitant]
     Active Substance: CODEINE
  13. IBESTARTIN [Concomitant]
  14. AMLODIPINE [Concomitant]
     Active Substance: AMLODIPINE BESYLATE

REACTIONS (2)
  - Medication error [None]
  - Dizziness [None]

NARRATIVE: CASE EVENT DATE: 20150305
